FAERS Safety Report 13261972 (Version 1)
Quarter: 2017Q1

REPORT INFORMATION
  Report Type: Spontaneous
  Country: AU (occurrence: AU)
  Receive Date: 20170222
  Receipt Date: 20170222
  Transmission Date: 20170428
  Serious: Yes (Other)
  Sender: FDA-Public Use
  Company Number: AU-MERCK KGAA-1063465

PATIENT
  Age: 63 Year
  Sex: Female

DRUGS (4)
  1. LEVOTHYROXINE. [Suspect]
     Active Substance: LEVOTHYROXINE
  2. NOVOTHYROX [Suspect]
     Active Substance: LEVOTHYROXINE SODIUM
     Indication: POST PROCEDURAL HYPOTHYROIDISM
  3. LEVOTHYROXINE. [Suspect]
     Active Substance: LEVOTHYROXINE
  4. ERLOTINIB [Suspect]
     Active Substance: ERLOTINIB

REACTIONS (1)
  - Hyperthyroidism [Recovered/Resolved]
